FAERS Safety Report 8387794-8 (Version None)
Quarter: 2012Q2

REPORT INFORMATION
  Report Type: 
  Country: None (occurrence: None)
  Receive Date: 20120525
  Receipt Date: 20120516
  Transmission Date: 20120825
  Serious: Yes (Other)
  Sender: FDA-Public Use
  Company Number: GR-GLAXOSMITHKLINE-B0803731A

PATIENT
  Age: 85 Year
  Sex: Female

DRUGS (1)
  1. TIMENTIN [Suspect]
     Indication: PRODUCT USED FOR UNKNOWN INDICATION
     Route: 065

REACTIONS (2)
  - HYPOKALAEMIA [None]
  - DEPRESSED LEVEL OF CONSCIOUSNESS [None]
